FAERS Safety Report 15647265 (Version 2)
Quarter: 2019Q2

REPORT INFORMATION
  Report Type: Spontaneous
  Country: US (occurrence: US)
  Receive Date: 20181122
  Receipt Date: 20190501
  Transmission Date: 20190711
  Serious: Yes (Hospitalization, Other)
  Sender: FDA-Public Use
  Company Number: US-SUN PHARMACEUTICAL INDUSTRIES LTD-2018R1-191654

PATIENT
  Age: 17 Month
  Sex: Male

DRUGS (1)
  1. PROPAFENONE. [Suspect]
     Active Substance: PROPAFENONE
     Indication: PRODUCT USED FOR UNKNOWN INDICATION
     Dosage: 300 MILLIGRAM, SINGLE (APPROXIMATELY 28 MG/KG AS A SINGLE INTAKE)
     Route: 048

REACTIONS (4)
  - Accidental exposure to product by child [Unknown]
  - Electrocardiogram QT prolonged [Recovering/Resolving]
  - Accidental overdose [Unknown]
  - Electrocardiogram QRS complex prolonged [Recovering/Resolving]
